FAERS Safety Report 9282871 (Version 1)
Quarter: 2013Q2

REPORT INFORMATION
  Report Type: Spontaneous
  Country: BR (occurrence: BR)
  Receive Date: 20130510
  Receipt Date: 20130510
  Transmission Date: 20140414
  Serious: Yes (Other)
  Sender: FDA-Public Use
  Company Number: BR-PFIZER INC-2013123411

PATIENT
  Age: 60 Year
  Sex: Male
  Weight: 70 kg

DRUGS (4)
  1. CAVERJECT [Suspect]
     Dosage: UNK
  2. AMLODIPINE BESILATE [Concomitant]
     Indication: INFARCTION
     Dosage: UNK
  3. SUSTRATE [Concomitant]
     Indication: INFARCTION
     Dosage: UNK
  4. AAS [Concomitant]
     Indication: INFARCTION
     Dosage: UNK

REACTIONS (3)
  - Intestinal haemorrhage [Recovered/Resolved]
  - Diverticulitis [Unknown]
  - Drug ineffective [Unknown]
